FAERS Safety Report 23749687 (Version 9)
Quarter: 2024Q4

REPORT INFORMATION
  Report Type: Report from Study
  Country: CR (occurrence: CR)
  Receive Date: 20240416
  Receipt Date: 20241030
  Transmission Date: 20250115
  Serious: Yes (Hospitalization, Other)
  Sender: BIOGEN
  Company Number: CR-BIOGEN-2024BI01259931

PATIENT
  Age: 47 Year
  Sex: Female
  Weight: 103 kg

DRUGS (16)
  1. AVONEX [Suspect]
     Active Substance: INTERFERON BETA-1A
     Indication: Relapsing multiple sclerosis
     Route: 050
     Dates: start: 20240301
  2. AVONEX [Suspect]
     Active Substance: INTERFERON BETA-1A
  3. AVONEX [Suspect]
     Active Substance: INTERFERON BETA-1A
  4. AVONEX [Suspect]
     Active Substance: INTERFERON BETA-1A
  5. EPIVAL [Suspect]
     Active Substance: DIVALPROEX SODIUM
     Indication: Epilepsy
     Dosage: 2 PILLS IN THE MORNING, 2 PILLS AT 2 PM AND ONE AT NIGHT
     Route: 050
  6. EPIVAL [Suspect]
     Active Substance: DIVALPROEX SODIUM
     Dosage: 3 PILLS IN THE MORNING, 3 PILLS AT 2:00 P.M. AND 1 AT NIGHT
     Route: 050
  7. EPIVAL [Suspect]
     Active Substance: DIVALPROEX SODIUM
     Dosage: 2 PILLS IN THE MORNING, 2 PILLS AT 2 PM AND ONE AT NIGHT
     Route: 050
  8. DIAZEPAM [Suspect]
     Active Substance: DIAZEPAM
     Indication: Seizure
     Route: 050
  9. PHENYTOIN SODIUM [Suspect]
     Active Substance: PHENYTOIN SODIUM
     Indication: Seizure
     Route: 050
  10. ENALAPRIL [Concomitant]
     Active Substance: ENALAPRIL
     Indication: Hypertension
     Route: 050
  11. PREDNISOLONE [Concomitant]
     Active Substance: PREDNISOLONE
     Indication: Noninfectious myelitis
     Route: 050
  12. PREDNISOLONE [Concomitant]
     Active Substance: PREDNISOLONE
     Dosage: 2 PILLS IN THE MORNING, 2 AT 2:00 PM AND ONE AT NIGHT
     Route: 050
     Dates: start: 20240301
  13. CLOBAZAM [Concomitant]
     Active Substance: CLOBAZAM
     Indication: Seizure
     Dosage: TAKES AT NIGHT
     Route: 050
     Dates: start: 20240829
  14. OMEPRAZOLE [Concomitant]
     Active Substance: OMEPRAZOLE
     Indication: Gastrointestinal disorder prophylaxis
     Route: 050
     Dates: start: 20240301
  15. LAMICTAL [Concomitant]
     Active Substance: LAMOTRIGINE
     Indication: Epilepsy
     Route: 050
     Dates: start: 2020
  16. ESCITALOPRAM [Concomitant]
     Active Substance: ESCITALOPRAM OXALATE
     Indication: Depression
     Route: 050
     Dates: start: 20240301

REACTIONS (20)
  - Drug interaction [Unknown]
  - Blood pressure decreased [Recovered/Resolved]
  - Seizure [Recovered/Resolved]
  - Suicidal ideation [Unknown]
  - Urinary tract infection [Not Recovered/Not Resolved]
  - Drug hypersensitivity [Not Recovered/Not Resolved]
  - Sleep talking [Not Recovered/Not Resolved]
  - Ear discomfort [Not Recovered/Not Resolved]
  - Central nervous system lesion [Not Recovered/Not Resolved]
  - Burning sensation [Not Recovered/Not Resolved]
  - Hypoaesthesia [Recovered/Resolved]
  - Visual impairment [Not Recovered/Not Resolved]
  - Somnolence [Not Recovered/Not Resolved]
  - Skin wound [Not Recovered/Not Resolved]
  - Heart rate increased [Recovered/Resolved]
  - Decreased appetite [Recovered/Resolved]
  - Asthenia [Recovered/Resolved]
  - Depression [Not Recovered/Not Resolved]
  - Vomiting [Recovered/Resolved]
  - Pruritus [Not Recovered/Not Resolved]

NARRATIVE: CASE EVENT DATE: 20231201
